FAERS Safety Report 7973449-8 (Version None)
Quarter: 2011Q4

REPORT INFORMATION
  Report Type: 
  Country: None (occurrence: None)
  Receive Date: 20111213
  Receipt Date: 20111208
  Transmission Date: 20120403
  Serious: Yes (Other)
  Sender: FDA-Public Use
  Company Number: US-ABBOTT-11P-163-0851541-00

PATIENT
  Age: 48 Year
  Sex: Male

DRUGS (4)
  1. HUMIRA [Suspect]
     Dates: end: 20100501
  2. HUMIRA [Suspect]
     Dates: start: 20111201
  3. HUMIRA [Suspect]
     Indication: ANKYLOSING SPONDYLITIS
     Dates: start: 20090301
  4. HUMIRA [Suspect]
     Dates: start: 20100501

REACTIONS (6)
  - NASOPHARYNGITIS [None]
  - OROPHARYNGEAL PAIN [None]
  - NECK PAIN [None]
  - INJECTION SITE PAIN [None]
  - INJECTION SITE VESICLES [None]
  - NEPHROLITHIASIS [None]
